FAERS Safety Report 10256016 (Version 12)
Quarter: 2016Q3

REPORT INFORMATION
  Report Type: Report from Study
  Country: JP (occurrence: JP)
  Receive Date: 20140624
  Receipt Date: 20160719
  Transmission Date: 20161109
  Serious: Yes (Other)
  Sender: FDA-Public Use
  Company Number: PHHY2014JP003839

PATIENT
  Age: 7 Month
  Sex: Female
  Weight: 7 kg

DRUGS (31)
  1. ACZ885 [Suspect]
     Active Substance: CANAKINUMAB
     Dosage: 6 MG/KG, UNK
     Route: 058
  2. INCREMIN [Concomitant]
     Active Substance: FERRIC PYROPHOSPHATE
     Indication: PRODUCT USED FOR UNKNOWN INDICATION
     Dosage: 6 ML, UNK
     Route: 048
     Dates: start: 20130402, end: 20130704
  3. BERACHIN [Concomitant]
     Dosage: 0.5 MG, UNK
     Route: 048
     Dates: start: 20150330
  4. SATOSALBE [Concomitant]
     Active Substance: ZINC OXIDE
     Indication: PRODUCT USED FOR UNKNOWN INDICATION
     Dosage: UNK
     Route: 062
     Dates: start: 20130514
  5. ACZ885 [Suspect]
     Active Substance: CANAKINUMAB
     Dosage: 20 MG, UNK
     Route: 058
     Dates: start: 20140512
  6. ACZ885 [Suspect]
     Active Substance: CANAKINUMAB
     Dosage: 70 MG, UNK
     Route: 058
     Dates: start: 20141004
  7. ACZ885 [Suspect]
     Active Substance: CANAKINUMAB
     Dosage: 70 MG, UNK
     Route: 058
     Dates: start: 20141118
  8. ACZ885 [Suspect]
     Active Substance: CANAKINUMAB
     Dosage: 80 MG, UNK
     Route: 058
     Dates: start: 20150407
  9. ACZ885 [Suspect]
     Active Substance: CANAKINUMAB
     Dosage: 18 MG, QD
     Route: 058
     Dates: start: 20131031
  10. ACZ885 [Suspect]
     Active Substance: CANAKINUMAB
     Dosage: 76 MG, UNK
     Route: 058
     Dates: start: 20150106
  11. ZADITEN [Concomitant]
     Active Substance: KETOTIFEN FUMARATE
     Dosage: 0.5 MG, UNK
     Route: 048
     Dates: end: 20130730
  12. MUCODYNE [Concomitant]
     Active Substance: CARBOCYSTEINE
     Indication: PRODUCT USED FOR UNKNOWN INDICATION
     Dosage: 350 MG, UNK
     Route: 048
     Dates: start: 20150330
  13. ACZ885 [Suspect]
     Active Substance: CANAKINUMAB
     Indication: CHRONIC INFANTILE NEUROLOGICAL CUTANEOUS AND ARTICULAR SYNDROME
     Dosage: 2 MG/KG, UNK
     Route: 058
  14. LOCOID [Concomitant]
     Active Substance: HYDROCORTISONE BUTYRATE
     Indication: PRODUCT USED FOR UNKNOWN INDICATION
     Dosage: UNK
     Route: 062
     Dates: start: 20130514
  15. ACZ885 [Suspect]
     Active Substance: CANAKINUMAB
     Dosage: 15 MG, QD
     Route: 058
     Dates: start: 20130704
  16. ACZ885 [Suspect]
     Active Substance: CANAKINUMAB
     Dosage: 2 MG/KG, UNK
     Route: 058
  17. ACZ885 [Suspect]
     Active Substance: CANAKINUMAB
     Dosage: 40 MG, UNK
     Route: 058
     Dates: start: 20140707
  18. ACZ885 [Suspect]
     Active Substance: CANAKINUMAB
     Dosage: 80 MG, UNK
     Route: 058
     Dates: start: 20150219
  19. MIYA-BM [Concomitant]
     Active Substance: CLOSTRIDIUM BUTYRICUM SPORES STRAIN M-55
     Dosage: UNK
     Route: 048
     Dates: end: 20130727
  20. BERACHIN [Concomitant]
     Indication: PRODUCT USED FOR UNKNOWN INDICATION
     Dosage: 0.4 MG, UNK
     Route: 048
     Dates: end: 20150329
  21. PULSMARIN A [Concomitant]
     Active Substance: AMBROXOL HYDROCHLORIDE
     Dosage: 12 MG, UNK
     Route: 048
     Dates: start: 20150330
  22. ZINC OXIDE. [Concomitant]
     Active Substance: ZINC OXIDE
     Indication: PRODUCT USED FOR UNKNOWN INDICATION
     Dosage: UNK
     Route: 062
     Dates: start: 20130819
  23. ACZ885 [Suspect]
     Active Substance: CANAKINUMAB
     Dosage: 16 MG, QD
     Route: 058
     Dates: start: 20130829
  24. ACZ885 [Suspect]
     Active Substance: CANAKINUMAB
     Dosage: 20 MG, QD
     Route: 058
     Dates: start: 20140106
  25. MIYA-BM [Concomitant]
     Active Substance: CLOSTRIDIUM BUTYRICUM SPORES STRAIN M-55
     Indication: PRODUCT USED FOR UNKNOWN INDICATION
     Dosage: UNK
     Route: 048
     Dates: start: 20130430
  26. PULSMARIN A [Concomitant]
     Active Substance: AMBROXOL HYDROCHLORIDE
     Indication: PRODUCT USED FOR UNKNOWN INDICATION
     Dosage: 9 MG, UNK
     Route: 048
  27. ACZ885 [Suspect]
     Active Substance: CANAKINUMAB
     Indication: CRYOPYRIN ASSOCIATED PERIODIC SYNDROME
     Dosage: 13 MG, QD
     Route: 058
     Dates: start: 20130507
  28. ACZ885 [Suspect]
     Active Substance: CANAKINUMAB
     Dosage: 20 MG, QD
     Route: 058
     Dates: start: 20140306
  29. ACZ885 [Suspect]
     Active Substance: CANAKINUMAB
     Dosage: 2 MG/KG, UNK
     Route: 058
  30. ACZ885 [Suspect]
     Active Substance: CANAKINUMAB
     Dosage: 45 MG, UNK
     Route: 058
     Dates: start: 20140902
  31. ZADITEN [Concomitant]
     Active Substance: KETOTIFEN FUMARATE
     Indication: PRODUCT USED FOR UNKNOWN INDICATION
     Dosage: 0.4 MG, UNK
     Route: 048
     Dates: start: 20130309

REACTIONS (20)
  - Hepatic enzyme increased [Recovering/Resolving]
  - Nasopharyngitis [Unknown]
  - Streptococcus test positive [Unknown]
  - C-reactive protein increased [Unknown]
  - CSF pressure increased [Unknown]
  - Adenovirus infection [Recovering/Resolving]
  - Pneumonia [Recovering/Resolving]
  - Pharyngitis [Recovering/Resolving]
  - Conjunctivitis [Recovering/Resolving]
  - C-reactive protein increased [Recovered/Resolved]
  - Chronic infantile neurological cutaneous and articular syndrome [Unknown]
  - Gastroenteritis [Recovering/Resolving]
  - Drug eruption [Recovering/Resolving]
  - Pyrexia [Recovered/Resolved]
  - Drug effect incomplete [Unknown]
  - Haemophilus infection [Unknown]
  - CSF cell count increased [Unknown]
  - Inflammation [Unknown]
  - Pyrexia [Unknown]
  - Drug administered to patient of inappropriate age [Unknown]

NARRATIVE: CASE EVENT DATE: 20130527
